FAERS Safety Report 4949572-9 (Version None)
Quarter: 2006Q1

REPORT INFORMATION
  Report Type: 
  Country: None (occurrence: None)
  Receive Date: 20060127
  Receipt Date: 20050202
  Transmission Date: 20060701
  Serious: Yes (Other)
  Sender: FDA-Public Use
  Company Number: 05-02-0154

PATIENT
  Age: 37 Year
  Sex: Female

DRUGS (3)
  1. CLOZAPINE [Suspect]
     Indication: SCHIZOPHRENIA
     Dosage: 87-500MG QD, ORAL
     Route: 048
     Dates: start: 20040501, end: 20050113
  2. CIPROFLOXACIN [Suspect]
     Indication: PERICHONDRITIS
     Dates: start: 20050103, end: 20050113
  3. CLINDAMYCIN [Concomitant]

REACTIONS (1)
  - NEUTROPENIA [None]
